FAERS Safety Report 8631376 (Version 2)
Quarter: 2012Q4

REPORT INFORMATION
  Report Type: Report from Study
  Country: JP (occurrence: JP)
  Receive Date: 20120622
  Receipt Date: 20120911
  Transmission Date: 20130627
  Serious: Yes (Death, Other)
  Sender: FDA-Public Use
  Company Number: JP-ROCHE-1079564

PATIENT
  Age: 62 None
  Sex: Male
  Weight: 40 kg

DRUGS (13)
  1. OMALIZUMAB [Suspect]
     Indication: ASTHMA
     Dosage: Q4 week
     Route: 058
     Dates: start: 20111017
  2. OMALIZUMAB [Suspect]
     Route: 058
     Dates: start: 20111115, end: 20111115
  3. ASMANEX [Concomitant]
  4. HOKUNALIN [Concomitant]
  5. KIPRES [Concomitant]
  6. PREDONINE [Concomitant]
  7. SPIRIVA [Concomitant]
  8. ERYTHROCIN [Concomitant]
  9. OMEPRAL [Concomitant]
  10. LUPRAC [Concomitant]
  11. MAGMITT [Concomitant]
  12. MUCODYNE [Concomitant]
  13. ITRIZOLE [Concomitant]

REACTIONS (2)
  - Bacterial infection [Fatal]
  - Bronchopulmonary aspergillosis [Unknown]
